FAERS Safety Report 8099911-8 (Version None)
Quarter: 2012Q1

REPORT INFORMATION
  Report Type: 
  Country: None (occurrence: None)
  Receive Date: 20120129
  Receipt Date: 20111128
  Transmission Date: 20120608
  Serious: No
  Sender: FDA-Public Use
  Company Number: US-ABBOTT-11P-163-0878060-00

PATIENT
  Sex: Female
  Weight: 78.088 kg

DRUGS (10)
  1. UNKNOWN INHALERS [Concomitant]
     Indication: ASTHMA
  2. OXYGEN [Concomitant]
     Indication: EMPHYSEMA
  3. OXYGEN [Concomitant]
     Indication: DYSPNOEA
  4. ALBUTEROL [Concomitant]
     Indication: CHRONIC OBSTRUCTIVE PULMONARY DISEASE
  5. HUMIRA [Suspect]
     Indication: PSORIASIS
     Route: 058
     Dates: start: 20101118
  6. OXYGEN [Concomitant]
     Indication: CHRONIC OBSTRUCTIVE PULMONARY DISEASE
  7. UNKNOWN MEDICATIONS [Concomitant]
     Indication: HYPERTENSION
  8. SINGULAIR [Concomitant]
     Indication: EMPHYSEMA
  9. HUMIRA [Suspect]
     Indication: PSORIATIC ARTHROPATHY
  10. ZANTAC [Concomitant]
     Indication: ABDOMINAL PAIN UPPER

REACTIONS (6)
  - FLUSHING [None]
  - INJECTION SITE ERYTHEMA [None]
  - BLOOD PRESSURE INCREASED [None]
  - ANXIETY [None]
  - INJECTION SITE NODULE [None]
  - INJECTION SITE PAIN [None]
